FAERS Safety Report 12583973 (Version 2)
Quarter: 2016Q3

REPORT INFORMATION
  Report Type: Report from Study
  Country: MX (occurrence: MX)
  Receive Date: 20160722
  Receipt Date: 20160818
  Transmission Date: 20161109
  Serious: Yes (Hospitalization, Other)
  Sender: FDA-Public Use
  Company Number: PHHY2016MX093940

PATIENT
  Age: 62 Year
  Sex: Female
  Weight: 81.5 kg

DRUGS (6)
  1. ONBREZ BREEZHALER [Suspect]
     Active Substance: INDACATEROL
     Dosage: UNK
     Route: 055
     Dates: end: 20160812
  2. SPIRONOLACTONE. [Concomitant]
     Active Substance: SPIRONOLACTONE
     Indication: RESPIRATORY FAILURE
     Dosage: 1 DF, Q12H
     Route: 048
     Dates: start: 201606, end: 201607
  3. ISOSORBIDE. [Concomitant]
     Active Substance: ISOSORBIDE
     Indication: RESPIRATORY FAILURE
     Dosage: 10 MG, Q12H
     Route: 048
     Dates: start: 20160527
  4. FUROSEMIDE. [Concomitant]
     Active Substance: FUROSEMIDE
     Indication: RESPIRATORY TRACT INFECTION
     Dosage: 40 MG, Q12H
     Route: 048
     Dates: start: 20160527
  5. ONBREZ BREEZHALER [Suspect]
     Active Substance: INDACATEROL
     Indication: CHRONIC OBSTRUCTIVE PULMONARY DISEASE
     Dosage: 1 DF, QD
     Route: 055
     Dates: start: 201606, end: 20160712
  6. CEPHALEXIN. [Concomitant]
     Active Substance: CEPHALEXIN
     Indication: RESPIRATORY TRACT INFECTION
     Dosage: 1 DF, EVERY 8 HOURS FOR 7 DAYS
     Route: 048
     Dates: start: 201605, end: 201606

REACTIONS (5)
  - Cardiac failure [Unknown]
  - Venous occlusion [Recovered/Resolved]
  - Phlebitis [Unknown]
  - Pain in extremity [Recovering/Resolving]
  - Thrombosis [Unknown]

NARRATIVE: CASE EVENT DATE: 20160623
